FAERS Safety Report 12777822 (Version 1)
Quarter: 2016Q3

REPORT INFORMATION
  Report Type: Spontaneous
  Country: US (occurrence: US)
  Receive Date: 20160924
  Receipt Date: 20160924
  Transmission Date: 20161109
  Serious: No
  Sender: FDA-Public Use
  Company Number: US-JAZZ-2016-US-010579

PATIENT
  Sex: Female

DRUGS (19)
  1. CYTOMEL [Concomitant]
     Active Substance: LIOTHYRONINE SODIUM
  2. MINOCYCLINE HCL [Concomitant]
     Active Substance: MINOCYCLINE HYDROCHLORIDE
  3. VYVANSE [Concomitant]
     Active Substance: LISDEXAMFETAMINE DIMESYLATE
  4. INDOLE-3-CARBINOL [Concomitant]
     Active Substance: DIETARY SUPPLEMENT
  5. BACLOFEN. [Concomitant]
     Active Substance: BACLOFEN
  6. XYREM [Suspect]
     Active Substance: SODIUM OXYBATE
     Indication: NARCOLEPSY
     Dosage: 2.25 G, BID
     Route: 048
     Dates: start: 201605, end: 201605
  7. FLONASE [Concomitant]
     Active Substance: FLUTICASONE PROPIONATE
  8. BIOTIN [Concomitant]
     Active Substance: BIOTIN
  9. FISH OIL [Concomitant]
     Active Substance: FISH OIL
  10. ACETYL L-CARNITINE [Concomitant]
     Active Substance: ACETYLCARNITINE
  11. MULTIVITAMIN [Concomitant]
     Active Substance: VITAMINS
  12. PROMETHAZINE [Concomitant]
     Active Substance: PROMETHAZINE\PROMETHAZINE HYDROCHLORIDE
  13. XYREM [Suspect]
     Active Substance: SODIUM OXYBATE
     Dosage: 4.5 G, BID
     Route: 048
     Dates: start: 201606
  14. HYDROCORTISONE. [Concomitant]
     Active Substance: HYDROCORTISONE
  15. DICLOFENAC SODIUM. [Concomitant]
     Active Substance: DICLOFENAC SODIUM
  16. MONTELUKAST SODIUM. [Concomitant]
     Active Substance: MONTELUKAST SODIUM
  17. PYRIDOSTIGMINE [Concomitant]
     Active Substance: PYRIDOSTIGMINE
  18. XYREM [Suspect]
     Active Substance: SODIUM OXYBATE
     Dosage: DOSE ADJUSTMENTS
     Route: 048
     Dates: start: 201605, end: 201606
  19. SELENIUM [Concomitant]
     Active Substance: SELENIUM

REACTIONS (1)
  - Tremor [Not Recovered/Not Resolved]

NARRATIVE: CASE EVENT DATE: 2016
